FAERS Safety Report 7244082-0 (Version None)
Quarter: 2011Q1

REPORT INFORMATION
  Report Type: 
  Country: None (occurrence: None)
  Receive Date: 20110119
  Receipt Date: 20110119
  Transmission Date: 20110831
  Serious: Yes (Other)
  Sender: FDA-Public Use
  Company Number: None

PATIENT
  Age: 32 Year
  Sex: Male
  Weight: 79.3795 kg

DRUGS (2)
  1. LEVAQUIN [Suspect]
     Indication: RESPIRATORY TRACT INFECTION
     Dosage: 750MG 1X/DAY PO
     Route: 048
     Dates: start: 20080911, end: 20080911
  2. FLOXIN OTIC [Suspect]
     Indication: OTITIS EXTERNA
     Dosage: SEVERAL DROPS 1X/DAY OTIC
     Dates: start: 20080911, end: 20080921

REACTIONS (18)
  - URINARY TRACT INFECTION [None]
  - BONE DISORDER [None]
  - PHOTOPSIA [None]
  - ARTHRALGIA [None]
  - KIDNEY INFECTION [None]
  - DRY EYE [None]
  - JOINT SPRAIN [None]
  - NOCTURIA [None]
  - UPPER LIMB FRACTURE [None]
  - DENTAL CARIES [None]
  - SKIN WARM [None]
  - FALL [None]
  - IMPAIRED HEALING [None]
  - CONTACT LENS INTOLERANCE [None]
  - TINNITUS [None]
  - VITREOUS FLOATERS [None]
  - ARTHRITIS [None]
  - GINGIVAL RECESSION [None]
